FAERS Safety Report 23149022 (Version 1)
Quarter: 2023Q4

REPORT INFORMATION
  Report Type: Spontaneous
  Country: US (occurrence: None)
  Receive Date: 20231103
  Receipt Date: 20231103
  Transmission Date: 20240110
  Serious: Yes (Other)
  Sender: FDA-Public Use
  Company Number: None

PATIENT
  Age: 39 Year
  Sex: Male
  Weight: 81 kg

DRUGS (4)
  1. CLONAZEPAM [Suspect]
     Active Substance: CLONAZEPAM
     Indication: Anxiety
     Dosage: OTHER QUANTITY : 2 TABLET(S);?FREQUENCY : TWICE A DAY;?
     Route: 048
  2. CLONAZEPAM [Suspect]
     Active Substance: CLONAZEPAM
     Indication: Panic disorder
  3. CLONAZEPAM [Suspect]
     Active Substance: CLONAZEPAM
     Indication: Post-traumatic stress disorder
  4. Clonazepam .5 mg twice a day [Concomitant]

REACTIONS (15)
  - Dizziness [None]
  - Balance disorder [None]
  - Mood swings [None]
  - Psychomotor hyperactivity [None]
  - Aggression [None]
  - Hostility [None]
  - Flat affect [None]
  - Memory impairment [None]
  - Affect lability [None]
  - Mental impairment [None]
  - Anxiety [None]
  - Drug tolerance [None]
  - Withdrawal syndrome [None]
  - Mania [None]
  - Drug ineffective [None]

NARRATIVE: CASE EVENT DATE: 20231103
